FAERS Safety Report 4843503-8 (Version None)
Quarter: 2005Q4

REPORT INFORMATION
  Report Type: 
  Country: None (occurrence: None)
  Receive Date: 20051202
  Receipt Date: 20051123
  Transmission Date: 20060501
  Serious: Yes (Other)
  Sender: FDA-Public Use
  Company Number: PHBS2005BR17342

PATIENT
  Age: 15 Year
  Sex: Female
  Weight: 70 kg

DRUGS (2)
  1. PARLODEL [Suspect]
     Indication: HYPERPROLACTINAEMIA
     Dosage: 50 MG, ONCE/SINGLE
     Route: 048
     Dates: start: 20051123
  2. PARLODEL [Suspect]
     Dosage: 5 MG, QD
     Route: 048

REACTIONS (7)
  - AGGRESSION [None]
  - AGITATION [None]
  - DIZZINESS [None]
  - MALAISE [None]
  - NAUSEA [None]
  - OVERDOSE [None]
  - SYNCOPE [None]
